FAERS Safety Report 4983729-6 (Version None)
Quarter: 2006Q2

REPORT INFORMATION
  Report Type: 
  Country: None (occurrence: None)
  Receive Date: 20060425
  Receipt Date: 20060425
  Transmission Date: 20061013
  Serious: No
  Sender: FDA-Public Use
  Company Number: None

PATIENT
  Age: 57 Year
  Sex: Male

DRUGS (1)
  1. INTEGRILIN [Suspect]

REACTIONS (2)
  - PETECHIAE [None]
  - PLATELET COUNT DECREASED [None]
